FAERS Safety Report 6228390-8 (Version None)
Quarter: 2009Q2

REPORT INFORMATION
  Report Type: 
  Country: None (occurrence: None)
  Receive Date: 20090612
  Receipt Date: 20090604
  Transmission Date: 20091009
  Serious: Yes (Death, Hospitalization)
  Sender: FDA-Public Use
  Company Number: US-ELI_LILLY_AND_COMPANY-US200811005757

PATIENT
  Age: 64 Year
  Sex: Female

DRUGS (13)
  1. BYETTA [Suspect]
     Indication: TYPE 2 DIABETES MELLITUS
     Dosage: 5 UG, 2/D
     Route: 058
     Dates: start: 20070207, end: 20070306
  2. BYETTA [Suspect]
     Dosage: 10 UG, 2/D
     Route: 058
     Dates: start: 20070307, end: 20070907
  3. BENICAR [Concomitant]
     Dosage: UNK, UNKNOWN
  4. BENICAR [Concomitant]
     Dosage: UNK, DAILY (1/D)
  5. DARVOCET [Concomitant]
     Dosage: 100 MG, DAILY (1/D)
  6. ENALAPRIL [Concomitant]
     Dosage: 20 MG, DAILY (1/D)
  7. ADVAIR HFA [Concomitant]
     Dosage: UNK, DAILY (1/D)
  8. SINGULAIR [Concomitant]
     Dosage: 10 MG, DAILY (1/D)
  9. ALDACTONE [Concomitant]
     Dosage: 25 MG, DAILY (1/D)
  10. LASIX [Concomitant]
     Dosage: 40 MG, DAILY (1/D)
  11. NOVOLOG MIX 70/30 [Concomitant]
     Dosage: UNK, EACH MORNING
  12. NOVOLOG MIX 70/30 [Concomitant]
     Dosage: UNK, EACH EVENING
  13. POTASSIUM CHLORIDE [Concomitant]
     Dosage: 20 MEQ, 2/D

REACTIONS (6)
  - DEATH [None]
  - DIABETIC GASTROPARESIS [None]
  - GASTRITIS [None]
  - NAUSEA [None]
  - VOMITING [None]
  - WEIGHT DECREASED [None]
